FAERS Safety Report 5761887-3 (Version None)
Quarter: 2008Q2

REPORT INFORMATION
  Report Type: 
  Country: None (occurrence: None)
  Receive Date: 20080602
  Receipt Date: 20080515
  Transmission Date: 20081010
  Serious: Yes (Other)
  Sender: FDA-Public Use
  Company Number: 8032654

PATIENT
  Sex: Female

DRUGS (8)
  1. LORTAB [Suspect]
     Indication: POST PROCEDURAL COMPLICATION
  2. ACTIQ [Suspect]
     Indication: ABDOMINAL PAIN
     Dosage: 200 MCG 3/D BUC
     Route: 002
     Dates: end: 20010509
  3. ACTIQ [Suspect]
     Indication: ABDOMINAL PAIN
     Dosage: 400 MCG 3/D BUC
     Route: 002
     Dates: start: 20010510, end: 20020824
  4. ACTIQ [Suspect]
     Indication: ABDOMINAL PAIN
     Dosage: 1500 MCG BUC
     Route: 002
     Dates: start: 20020825, end: 20030701
  5. DURAGESIC-100 [Suspect]
     Dosage: 1200 MCG /D TRD
     Route: 062
     Dates: end: 20010411
  6. DURAGESIC-100 [Suspect]
     Dosage: 1800 MCG /D TRD
     Route: 062
     Dates: start: 20010412, end: 20010813
  7. DURAGESIC-100 [Suspect]
     Dosage: 2400 MCG /D TRD
     Route: 062
     Dates: start: 20010814
  8. DIAZEPAM [Concomitant]

REACTIONS (4)
  - DENTAL CARIES [None]
  - DEPENDENCE [None]
  - OVERDOSE [None]
  - TOOTH LOSS [None]
